FAERS Safety Report 24960585 (Version 2)
Quarter: 2025Q1

REPORT INFORMATION
  Report Type: Report from Study
  Country: GB (occurrence: GB)
  Receive Date: 20250212
  Receipt Date: 20250306
  Transmission Date: 20250408
  Serious: Yes (Hospitalization)
  Sender: SAMSUNG BIOEPIS
  Company Number: GB-SAMSUNG BIOEPIS-SB-2025-01833

PATIENT
  Age: 88 Year
  Sex: Female

DRUGS (2)
  1. ETANERCEPT [Suspect]
     Active Substance: ETANERCEPT
     Indication: Rheumatoid arthritis
     Route: 058
     Dates: start: 20221220
  2. METHOTREXATE [Concomitant]
     Active Substance: METHOTREXATE
     Indication: Product used for unknown indication
     Dates: start: 20241228

REACTIONS (9)
  - Hip fracture [Unknown]
  - Wound [Unknown]
  - Wound infection [Unknown]
  - Lower respiratory tract infection [Unknown]
  - Pulmonary embolism [Unknown]
  - Sepsis [Unknown]
  - Kidney infection [Unknown]
  - Cystitis [Unknown]
  - Pleural effusion [Unknown]
